FAERS Safety Report 10742611 (Version 2)
Quarter: 2015Q1

REPORT INFORMATION
  Report Type: Spontaneous
  Country: CN (occurrence: CN)
  Receive Date: 20150127
  Receipt Date: 20150129
  Transmission Date: 20150721
  Serious: Yes (Other)
  Sender: FDA-Public Use
  Company Number: CN-BAYER-2015-008313

PATIENT
  Age: 60 Year
  Sex: Male

DRUGS (1)
  1. BAYASPIRIN [Suspect]
     Active Substance: ASPIRIN
     Indication: CEREBROVASCULAR ACCIDENT
     Dosage: UNK
     Route: 048
     Dates: start: 201310, end: 201501

REACTIONS (7)
  - Maculopathy [Recovering/Resolving]
  - Oesophageal polyp [None]
  - Procedural haemorrhage [None]
  - Abdominal discomfort [None]
  - Retinal haemorrhage [None]
  - Retinal haemorrhage [None]
  - Retinal exudates [Recovering/Resolving]

NARRATIVE: CASE EVENT DATE: 2014
